FAERS Safety Report 8042684-5 (Version None)
Quarter: 2011Q4

REPORT INFORMATION
  Report Type: 
  Country: None (occurrence: None)
  Receive Date: 20111202
  Receipt Date: 20090729
  Transmission Date: 20120403
  Serious: Yes (Hospitalization)
  Sender: FDA-Public Use
  Company Number: 2008-186094-NL

PATIENT
  Age: 28 Year
  Sex: Female
  Weight: 64.4108 kg

DRUGS (1)
  1. NUVARING [Suspect]
     Indication: CONTRACEPTION
     Dosage: 1 DF; ;VAG
     Route: 067
     Dates: start: 20050201, end: 20050501

REACTIONS (5)
  - BRONCHITIS [None]
  - PULMONARY EMBOLISM [None]
  - PAPILLOMA VIRAL INFECTION [None]
  - PULMONARY INFARCTION [None]
  - SECRETION DISCHARGE [None]
